FAERS Safety Report 4678108-5 (Version None)
Quarter: 2005Q2

REPORT INFORMATION
  Report Type: 
  Country: None (occurrence: None)
  Receive Date: 20050527
  Receipt Date: 20050520
  Transmission Date: 20051028
  Serious: Yes (Hospitalization)
  Sender: FDA-Public Use
  Company Number: TPA2003A00607

PATIENT
  Age: 69 Year
  Sex: Male

DRUGS (9)
  1. PIOGLITAZONE HCL [Suspect]
     Indication: DIABETES MELLITUS NON-INSULIN-DEPENDENT
     Dosage: PER ORAL
     Route: 048
     Dates: end: 20020826
  2. FUROSEMIDE [Concomitant]
  3. LISINOPRIL [Concomitant]
  4. CLONIDINE (CLONIDINE) (POULTICE OR PATCH) [Concomitant]
  5. METOPROLOL TARTRATE [Concomitant]
  6. NIFEDIPINE [Concomitant]
  7. INSULIN [Concomitant]
  8. SIMVASTATIN [Concomitant]
  9. COUMADIN [Concomitant]

REACTIONS (3)
  - ANGINA PECTORIS [None]
  - CARDIAC STRESS TEST ABNORMAL [None]
  - CONDITION AGGRAVATED [None]
